FAERS Safety Report 6207223-X (Version None)
Quarter: 2009Q2

REPORT INFORMATION
  Report Type: 
  Country: None (occurrence: None)
  Receive Date: 20090528
  Receipt Date: 20090526
  Transmission Date: 20091009
  Serious: Yes (Death, Hospitalization)
  Sender: FDA-Public Use
  Company Number: PHHY2009EC20250

PATIENT
  Age: 79 Year
  Sex: Female

DRUGS (2)
  1. ACLASTA [Suspect]
     Indication: OSTEOPOROSIS POSTMENOPAUSAL
     Dosage: UNK
  2. ACLASTA [Suspect]
     Dosage: 1 DF, ONCE/SINGLE
     Dates: start: 20080707

REACTIONS (4)
  - COLON CANCER [None]
  - MYOCARDIAL INFARCTION [None]
  - RECTAL HAEMORRHAGE [None]
  - SURGERY [None]
